FAERS Safety Report 10446294 (Version 3)
Quarter: 2017Q2

REPORT INFORMATION
  Report Type: Spontaneous
  Country: GB (occurrence: GB)
  Receive Date: 20140911
  Receipt Date: 20170525
  Transmission Date: 20170829
  Serious: Yes (Other)
  Sender: FDA-Public Use
  Company Number: GB-AUROBINDO-AUR-APL-2014-09644

PATIENT
  Age: 60 Year
  Sex: Male
  Weight: 87.8 kg

DRUGS (2)
  1. LEVOTHYROXINE SODIUM. [Concomitant]
     Active Substance: LEVOTHYROXINE SODIUM
     Indication: PRODUCT USED FOR UNKNOWN INDICATION
     Dosage: 125 ?G, ONCE A DAY
     Route: 065
  2. IRBESARTAN 75 MG [Suspect]
     Active Substance: IRBESARTAN
     Indication: HYPERTENSION
     Dosage: 75 MG, ONCE A DAY
     Route: 048
     Dates: start: 20140605, end: 20140623

REACTIONS (2)
  - Drug ineffective [Recovered/Resolved]
  - Head discomfort [Recovered/Resolved]
